FAERS Safety Report 11549928 (Version 1)
Quarter: 2015Q3

REPORT INFORMATION
  Report Type: Spontaneous
  Country: GR (occurrence: GR)
  Receive Date: 20150924
  Receipt Date: 20150924
  Transmission Date: 20151125
  Serious: Yes (Hospitalization)
  Sender: FDA-Public Use
  Company Number: PHHY2015GR114281

PATIENT
  Age: 22 Year

DRUGS (1)
  1. OLANZAPINE. [Suspect]
     Active Substance: OLANZAPINE
     Indication: SCHIZOPHRENIA
     Route: 065

REACTIONS (5)
  - Hypertriglyceridaemia [Recovered/Resolved]
  - Diabetes mellitus [Unknown]
  - Acidosis [Unknown]
  - Pancreatitis necrotising [Recovered/Resolved]
  - Acute respiratory failure [Unknown]
